FAERS Safety Report 6364941-0 (Version None)
Quarter: 2009Q3

REPORT INFORMATION
  Report Type: 
  Country: None (occurrence: None)
  Receive Date: 20090919
  Receipt Date: 20090730
  Transmission Date: 20100115
  Serious: No
  Sender: FDA-Public Use
  Company Number: US-ABBOTT-09P-163-0588906-00

PATIENT
  Sex: Female
  Weight: 93.07 kg

DRUGS (2)
  1. HUMIRA [Suspect]
     Indication: PSORIASIS
     Dosage: LOADING DOSE
     Route: 058
     Dates: start: 20090728, end: 20090728
  2. LASIX [Concomitant]
     Indication: OEDEMA PERIPHERAL
     Route: 048

REACTIONS (2)
  - CHEST DISCOMFORT [None]
  - HEADACHE [None]
